FAERS Safety Report 14587489 (Version 1)
Quarter: 2018Q1

REPORT INFORMATION
  Report Type: Spontaneous
  Country: US (occurrence: US)
  Receive Date: 20180301
  Receipt Date: 20180301
  Transmission Date: 20180509
  Serious: Yes (Death, Disabling, Other)
  Sender: FDA-Public Use
  Company Number: US-JNJFOC-20180124061

PATIENT
  Age: 57 Year
  Sex: Male

DRUGS (1)
  1. INVOKANA [Suspect]
     Active Substance: CANAGLIFLOZIN
     Indication: PRODUCT USED FOR UNKNOWN INDICATION
     Route: 048

REACTIONS (2)
  - Osteomyelitis acute [Unknown]
  - Amputation [Unknown]

NARRATIVE: CASE EVENT DATE: 20151127
